FAERS Safety Report 6310537-6 (Version None)
Quarter: 2009Q3

REPORT INFORMATION
  Report Type: 
  Country: None (occurrence: None)
  Receive Date: 20090811
  Receipt Date: 20090518
  Transmission Date: 20100115
  Serious: No
  Sender: FDA-Public Use
  Company Number: 1000006332

PATIENT
  Sex: Female

DRUGS (3)
  1. SAVELLA [Suspect]
     Dosage: 12.5 MG 912.5 MG, 1 IN 1 D), ORAL
     Route: 048
     Dates: start: 20090514, end: 20090514
  2. SAVELLA [Suspect]
     Dosage: 12.5 MG 912.5 MG, 1 IN 1 D), ORAL
     Route: 048
     Dates: start: 20090515, end: 20090516
  3. SAVELLA [Suspect]
     Dosage: 12.5 MG 912.5 MG, 1 IN 1 D), ORAL
     Route: 048
     Dates: start: 20090517

REACTIONS (2)
  - HYPERHIDROSIS [None]
  - VISION BLURRED [None]
